FAERS Safety Report 24820619 (Version 1)
Quarter: 2025Q1

REPORT INFORMATION
  Report Type: Spontaneous
  Country: US (occurrence: None)
  Receive Date: 20250108
  Receipt Date: 20250108
  Transmission Date: 20250408
  Serious: Yes (Other)
  Sender: FDA-CTU
  Company Number: None

PATIENT
  Age: 24 Year
  Weight: 72 kg

DRUGS (4)
  1. ABILIFY [Suspect]
     Active Substance: ARIPIPRAZOLE
  2. DULOXETINE [Suspect]
     Active Substance: DULOXETINE
  3. LAMOTRIGINE [Concomitant]
     Active Substance: LAMOTRIGINE
  4. BIRTH CONTROL ARM IMPLANT [Concomitant]

REACTIONS (2)
  - Anorgasmia [None]
  - Libido decreased [None]

NARRATIVE: CASE EVENT DATE: 20160101
